FAERS Safety Report 16134305 (Version 3)
Quarter: 2021Q1

REPORT INFORMATION
  Report Type: Other
  Country: US (occurrence: US)
  Receive Date: 20190329
  Receipt Date: 20210212
  Transmission Date: 20210419
  Serious: No
  Sender: FDA-Public Use
  Company Number: US-ROCHE-2292373

PATIENT
  Age: 33 Year
  Sex: Female
  Weight: 102.15 kg

DRUGS (2)
  1. OCREVUS [Suspect]
     Active Substance: OCRELIZUMAB
     Dosage: SECOND SPLIT DOSE
     Route: 042
     Dates: start: 20190304
  2. OCREVUS [Suspect]
     Active Substance: OCRELIZUMAB
     Indication: RELAPSING-REMITTING MULTIPLE SCLEROSIS
     Dosage: 600 MG OF 6 MONTH
     Route: 042
     Dates: start: 20190218

REACTIONS (3)
  - Flushing [Recovered/Resolved]
  - Fatigue [Recovered/Resolved]
  - Nasopharyngitis [Unknown]

NARRATIVE: CASE EVENT DATE: 20190306
